FAERS Safety Report 15629191 (Version 1)
Quarter: 2018Q4

REPORT INFORMATION
  Report Type: Spontaneous
  Country: CN (occurrence: CN)
  Receive Date: 20181116
  Receipt Date: 20181116
  Transmission Date: 20190205
  Serious: Yes (Death, Hospitalization, Disabling)
  Sender: FDA-Public Use
  Company Number: CN-ROCHE-2214046

PATIENT
  Age: 44 Year
  Sex: Male
  Weight: 62 kg

DRUGS (7)
  1. RITUXIMAB. [Suspect]
     Active Substance: RITUXIMAB
     Dosage: 100 MG/10 ML
     Route: 042
     Dates: start: 20180422
  2. RITUXIMAB. [Suspect]
     Active Substance: RITUXIMAB
     Dosage: 100 MG/ ML
     Route: 042
     Dates: start: 20180616
  3. DOXORUBICIN [Concomitant]
     Active Substance: DOXORUBICIN
     Indication: DIFFUSE LARGE B-CELL LYMPHOMA
     Route: 065
     Dates: start: 20180117
  4. RITUXIMAB. [Suspect]
     Active Substance: RITUXIMAB
     Indication: DIFFUSE LARGE B-CELL LYMPHOMA
     Route: 042
     Dates: start: 20180117
  5. VINCRISTINE [Concomitant]
     Active Substance: VINCRISTINE
     Indication: DIFFUSE LARGE B-CELL LYMPHOMA
     Route: 065
     Dates: start: 20180117
  6. PREDNISONE. [Concomitant]
     Active Substance: PREDNISONE
     Indication: DIFFUSE LARGE B-CELL LYMPHOMA
     Route: 065
     Dates: start: 20180117
  7. CYCLOPHOSPHAMIDE. [Concomitant]
     Active Substance: CYCLOPHOSPHAMIDE
     Indication: DIFFUSE LARGE B-CELL LYMPHOMA
     Route: 065
     Dates: start: 20180117

REACTIONS (5)
  - Reiter^s syndrome [Recovering/Resolving]
  - Rash [Unknown]
  - Arthritis [Recovering/Resolving]
  - Arthritis [Recovering/Resolving]
  - Death [Fatal]

NARRATIVE: CASE EVENT DATE: 20180426
